FAERS Safety Report 9199901 (Version 2)
Quarter: 2013Q2

REPORT INFORMATION
  Report Type: Spontaneous
  Country: CO (occurrence: CO)
  Receive Date: 20130329
  Receipt Date: 20130410
  Transmission Date: 20140414
  Serious: Yes (Other)
  Sender: FDA-Public Use
  Company Number: CO-PFIZER INC-2010165499

PATIENT
  Age: 78 Year
  Sex: Female

DRUGS (9)
  1. LIPITOR [Suspect]
     Indication: CEREBROVASCULAR ACCIDENT
     Dosage: 20 MG, 1X/DAY
     Route: 048
     Dates: start: 2010, end: 201302
  2. LIPITOR [Suspect]
     Indication: CEREBRAL INFARCTION
  3. LIPITOR [Suspect]
     Indication: ISCHAEMIA
  4. PLAVIX [Concomitant]
     Indication: CEREBROVASCULAR ACCIDENT
     Dosage: UNK, 1X/DAY
     Route: 048
     Dates: start: 2010
  5. COZAAR [Concomitant]
     Indication: HYPERTENSION
     Dosage: 50 MG, 2X/DAY
     Route: 048
     Dates: start: 2008
  6. METOPROLOL [Concomitant]
     Indication: CARDIAC DISORDER
     Dosage: 25 MG (50 MG HALF TABLET IN NIGHT AND HALFT TABLET IN MORNING), 2X/DAY
     Dates: start: 2010
  7. LORATADINE [Concomitant]
     Indication: HYPERSENSITIVITY
     Dosage: ONE SPOON OF A 100 MG CAN, AS NEEDED
     Route: 048
  8. LORATADINE [Concomitant]
     Indication: FOOD ALLERGY
  9. ERYTHROPOIETIN [Concomitant]
     Dosage: UNK
     Route: 058
     Dates: start: 2011, end: 201209

REACTIONS (6)
  - Balance disorder [Not Recovered/Not Resolved]
  - Cardiac function test abnormal [Recovered/Resolved]
  - Platelet count decreased [Not Recovered/Not Resolved]
  - Weight decreased [Not Recovered/Not Resolved]
  - Depressed mood [Not Recovered/Not Resolved]
  - Headache [Not Recovered/Not Resolved]
